FAERS Safety Report 5291861-5 (Version None)
Quarter: 2007Q2

REPORT INFORMATION
  Report Type: 
  Country: None (occurrence: None)
  Receive Date: 20070406
  Receipt Date: 20070406
  Transmission Date: 20071010
  Serious: No
  Sender: FDA-Public Use
  Company Number: None

PATIENT
  Age: 40 Year
  Sex: Male

DRUGS (1)
  1. DEFINITY [Suspect]
     Indication: CHEST PAIN
     Dosage: TOTAL 0.8 ML X1 IV
     Route: 042
     Dates: start: 20070326

REACTIONS (1)
  - BACK PAIN [None]
